FAERS Safety Report 16080569 (Version 1)
Quarter: 2019Q1

REPORT INFORMATION
  Report Type: Report from Study
  Country: None (occurrence: US)
  Receive Date: 20190315
  Receipt Date: 20190315
  Transmission Date: 20190418
  Serious: Yes (Other)
  Sender: FDA-Public Use
  Company Number: US-ABBVIE-19S-163-2699926-00

PATIENT
  Sex: Male

DRUGS (1)
  1. CREON [Suspect]
     Active Substance: PANCRELIPASE AMYLASE\PANCRELIPASE LIPASE\PANCRELIPASE PROTEASE
     Indication: PRODUCT USED FOR UNKNOWN INDICATION
     Route: 048

REACTIONS (16)
  - Metabolic surgery [Unknown]
  - Duodenal switch [Unknown]
  - Pelvic pain [Unknown]
  - Arthralgia [Unknown]
  - Flatulence [Unknown]
  - Steatorrhoea [Unknown]
  - Gastrointestinal disorder [Unknown]
  - Surgery [Unknown]
  - Lyme disease [Unknown]
  - Back pain [Unknown]
  - Faecal calprotectin increased [Unknown]
  - Ankylosing spondylitis [Unknown]
  - Defaecation urgency [Unknown]
  - Diarrhoea [Unknown]
  - Anal incontinence [Unknown]
  - Rectal haemorrhage [Unknown]

NARRATIVE: CASE EVENT DATE: 2010
